FAERS Safety Report 20973802 (Version 1)
Quarter: 2022Q2

REPORT INFORMATION
  Report Type: Spontaneous
  Country: US (occurrence: US)
  Receive Date: 20220617
  Receipt Date: 20220617
  Transmission Date: 20220721
  Serious: Yes (Other)
  Sender: FDA-Public Use
  Company Number: US-SA-SAC20220613002087

PATIENT
  Age: 52 Year
  Sex: Female

DRUGS (1)
  1. ZANTAC [Suspect]
     Active Substance: RANITIDINE HYDROCHLORIDE
     Dosage: 300 MG
     Dates: start: 199008, end: 201002

REACTIONS (2)
  - Skin cancer [Unknown]
  - Breast cancer stage II [Unknown]

NARRATIVE: CASE EVENT DATE: 20060101
